FAERS Safety Report 11826202 (Version 8)
Quarter: 2019Q1

REPORT INFORMATION
  Report Type: Report from Study
  Country: US (occurrence: US)
  Receive Date: 20151211
  Receipt Date: 20190129
  Transmission Date: 20190417
  Serious: Yes (Other)
  Sender: FDA-Public Use
  Company Number: PHHY2015US159937

PATIENT
  Age: 60 Year
  Sex: Female

DRUGS (1)
  1. GILENYA [Suspect]
     Active Substance: FINGOLIMOD HYDROCHLORIDE
     Indication: MULTIPLE SCLEROSIS
     Dosage: UNK, QD
     Route: 048

REACTIONS (11)
  - Solar lentigo [Unknown]
  - Fibrous histiocytoma [Unknown]
  - Influenza [Unknown]
  - Benign neoplasm [Unknown]
  - White blood cell count decreased [Unknown]
  - Lymphocyte count decreased [Unknown]
  - Seborrhoeic keratosis [Unknown]
  - Skin lesion [Recovered/Resolved]
  - Swelling [Unknown]
  - Limb injury [Unknown]
  - Constipation [Unknown]

NARRATIVE: CASE EVENT DATE: 20150311
